FAERS Safety Report 6868691-3 (Version None)
Quarter: 2010Q3

REPORT INFORMATION
  Report Type: 
  Country: None (occurrence: None)
  Receive Date: 20100722
  Receipt Date: 20080619
  Transmission Date: 20110219
  Serious: No
  Sender: FDA-Public Use
  Company Number: US-PFIZER INC-2008049490

PATIENT
  Sex: Male
  Weight: 75 kg

DRUGS (9)
  1. CHANTIX [Suspect]
     Indication: SMOKING CESSATION THERAPY
     Dates: start: 20070101
  2. VITAMIN E [Concomitant]
  3. VITAMIN C [Concomitant]
  4. MONTELUKAST SODIUM [Concomitant]
  5. VYTORIN [Concomitant]
  6. TOPROL-XL [Concomitant]
  7. PREVACID [Concomitant]
  8. ALBUTEROL [Concomitant]
     Route: 055
  9. XOPENEX [Concomitant]
     Route: 055

REACTIONS (1)
  - NAUSEA [None]
